FAERS Safety Report 4891231-5 (Version None)
Quarter: 2006Q1

REPORT INFORMATION
  Report Type: 
  Country: None (occurrence: None)
  Receive Date: 20060125
  Receipt Date: 20060120
  Transmission Date: 20060701
  Serious: Yes (Death)
  Sender: FDA-Public Use
  Company Number: 2006AP00355

PATIENT
  Age: 95 Year

DRUGS (2)
  1. OMEPRAL [Suspect]
     Route: 048
  2. OVULANZE [Suspect]
     Route: 048

REACTIONS (1)
  - HEPATITIS FULMINANT [None]
